FAERS Safety Report 6437267-4 (Version None)
Quarter: 2009Q4

REPORT INFORMATION
  Report Type: 
  Country: None (occurrence: None)
  Receive Date: 20091112
  Receipt Date: 20091030
  Transmission Date: 20100525
  Serious: Yes (Death)
  Sender: FDA-Public Use
  Company Number: JP-ROCHE-666521

PATIENT
  Age: 46 Year
  Sex: Male

DRUGS (1)
  1. TAMIFLU [Suspect]
     Dosage: DOSE, FREQUENCY UNSPECIFIED. STOP DATE:2009
     Route: 048
     Dates: start: 20091029

REACTIONS (1)
  - PNEUMONIA [None]
